FAERS Safety Report 10902310 (Version 1)
Quarter: 2015Q1

REPORT INFORMATION
  Report Type: Report from Study
  Country: BR (occurrence: BR)
  Receive Date: 20150310
  Receipt Date: 20150310
  Transmission Date: 20150721
  Serious: Yes (Hospitalization)
  Sender: FDA-Public Use
  Company Number: BR-ABBVIE-15K-020-1356210-00

PATIENT
  Age: 36 Year
  Sex: Male
  Weight: 82 kg

DRUGS (2)
  1. BETALOR [Concomitant]
     Active Substance: AMLODIPINE BESYLATE\ATENOLOL
     Indication: HYPERTENSION
     Route: 048
     Dates: start: 2002
  2. HUMIRA [Suspect]
     Active Substance: ADALIMUMAB
     Indication: ANKYLOSING SPONDYLITIS
     Route: 058
     Dates: start: 20150203

REACTIONS (3)
  - Pneumonia [Recovering/Resolving]
  - Pain [Unknown]
  - Erythema [Recovered/Resolved]

NARRATIVE: CASE EVENT DATE: 20150214
